FAERS Safety Report 10433855 (Version 1)
Quarter: 2014Q3

REPORT INFORMATION
  Report Type: Spontaneous
  Country: US (occurrence: US)
  Receive Date: 20140905
  Receipt Date: 20140905
  Transmission Date: 20150326
  Serious: Yes (Hospitalization, Other)
  Sender: FDA-Public Use
  Company Number: US-BAYER-2014-128575

PATIENT
  Age: 61 Year
  Sex: Male
  Weight: 94.8 kg

DRUGS (6)
  1. LISINOPRIL. [Concomitant]
     Active Substance: LISINOPRIL
     Dosage: 5 MG, QD
     Route: 048
     Dates: start: 20140107
  2. ACETYLSALICYLIC ACID({=100 MG) [Suspect]
     Active Substance: ASPIRIN
     Dosage: 81 MG, ONCE A DAY
     Route: 048
     Dates: start: 20140107, end: 20140808
  3. NICORETTE [NICOTINE] [Concomitant]
     Dosage: 4 MG, BID
     Route: 048
     Dates: start: 20131229
  4. ATORVASTATIN [Concomitant]
     Active Substance: ATORVASTATIN
     Dosage: 80 MG, QD
     Route: 048
     Dates: start: 20140107
  5. METOPROLOL [Concomitant]
     Active Substance: METOPROLOL
     Dosage: 12.5 MG, BID
     Route: 048
     Dates: start: 20140107
  6. PLAVIX [Interacting]
     Active Substance: CLOPIDOGREL BISULFATE
     Dosage: 75 MG, ONCE A DAY
     Route: 048
     Dates: start: 20140204, end: 20140808

REACTIONS (8)
  - Nephrolithiasis [None]
  - Haemorrhagic anaemia [None]
  - Labelled drug-drug interaction medication error [None]
  - Haematuria [Recovered/Resolved]
  - Hypoxia [Recovered/Resolved]
  - Upper respiratory tract infection [Recovered/Resolved]
  - Pollakiuria [None]
  - Benign prostatic hyperplasia [None]

NARRATIVE: CASE EVENT DATE: 20140804
